FAERS Safety Report 8565260-4 (Version None)
Quarter: 2012Q3

REPORT INFORMATION
  Report Type: 
  Country: None (occurrence: None)
  Receive Date: 20120803
  Receipt Date: 20120726
  Transmission Date: 20120928
  Serious: Yes (Life-Threatening)
  Sender: FDA-Public Use
  Company Number: DE-GLAXOSMITHKLINE-D0075764A

PATIENT
  Sex: Female
  Weight: 78 kg

DRUGS (3)
  1. SUMATRIPTAN SUCCINATE [Suspect]
     Indication: MIGRAINE
     Dosage: 100MG SINGLE DOSE
     Route: 048
     Dates: start: 20120508
  2. LEVOTHYROXINE SODIUM [Concomitant]
     Route: 048
  3. CONTRACEPTIVE [Concomitant]
     Route: 048

REACTIONS (4)
  - CARDIOVASCULAR DISORDER [None]
  - ANAPHYLACTIC REACTION [None]
  - RASH MORBILLIFORM [None]
  - PRODUCT QUALITY ISSUE [None]
